FAERS Safety Report 7552861-5 (Version None)
Quarter: 2011Q2

REPORT INFORMATION
  Report Type: 
  Country: None (occurrence: None)
  Receive Date: 20110616
  Receipt Date: 20110614
  Transmission Date: 20111010
  Serious: Yes (Death, Hospitalization, Other)
  Sender: FDA-Public Use
  Company Number: GB-ABBOTT-09P-167-0499303-00

PATIENT
  Sex: Female
  Weight: 35 kg

DRUGS (5)
  1. SEVOFLURANE [Suspect]
     Indication: GENERAL ANAESTHESIA
     Dosage: INDUCTION, DURATION: 30-50 MINUTES
     Route: 055
     Dates: start: 20080619, end: 20080619
  2. TRAMADOL HCL [Concomitant]
     Indication: PRODUCT USED FOR UNKNOWN INDICATION
     Route: 048
     Dates: start: 20080601
  3. ACETAMINOPHEN [Concomitant]
     Indication: PRODUCT USED FOR UNKNOWN INDICATION
     Route: 048
     Dates: start: 20080601
  4. SEVOFLURANE [Suspect]
     Dosage: MAINTENANCE
     Route: 055
  5. ACETAMINOPHEN [Suspect]
     Indication: ARTHRALGIA
     Dosage: 20 DOSES OF 1 GRAM INSTEAD OF 525 MG
     Route: 042
     Dates: start: 20080617, end: 20080622

REACTIONS (17)
  - NAUSEA [None]
  - RALES [None]
  - HEPATIC FAILURE [None]
  - OVERDOSE [None]
  - CARDIAC ARREST [None]
  - VOMITING [None]
  - WHITE BLOOD CELL COUNT INCREASED [None]
  - MALAISE [None]
  - MYOCARDIAL INFARCTION [None]
  - COAGULOPATHY [None]
  - ANXIETY [None]
  - LIVER FUNCTION TEST ABNORMAL [None]
  - CONFUSIONAL STATE [None]
  - AGGRESSION [None]
  - TOXICITY TO VARIOUS AGENTS [None]
  - SPEECH DISORDER [None]
  - PNEUMONIA PRIMARY ATYPICAL [None]
